FAERS Safety Report 6819913-6 (Version None)
Quarter: 2010Q3

REPORT INFORMATION
  Report Type: 
  Country: None (occurrence: None)
  Receive Date: 20100707
  Receipt Date: 20100624
  Transmission Date: 20110219
  Serious: Yes (Death, Hospitalization)
  Sender: FDA-Public Use
  Company Number: JP-AMGEN-US409608

PATIENT
  Sex: Female
  Weight: 40 kg

DRUGS (10)
  1. ENBREL [Suspect]
     Indication: RHEUMATOID ARTHRITIS
     Dosage: LYOPHILIZED, 25MG TWICE WEEKLY
     Route: 058
     Dates: start: 20071010
  2. ENBREL [Suspect]
     Dosage: PREFILLED SYRINGE, 25 MG/WEEK
     Route: 058
     Dates: start: 20090301, end: 20090301
  3. ENBREL [Suspect]
     Route: 058
     Dates: start: 20090301, end: 20100312
  4. ISONIAZID [Concomitant]
     Indication: ANTIBIOTIC PROPHYLAXIS
     Route: 048
     Dates: start: 20080801, end: 20090501
  5. ISONIAZID [Concomitant]
     Route: 048
     Dates: start: 20100301
  6. OMEPRAL [Concomitant]
     Indication: GASTRITIS
     Route: 048
  7. FOLIAMIN [Concomitant]
     Indication: PROPHYLAXIS
     Route: 048
  8. RHEUMATREX [Concomitant]
     Indication: RHEUMATOID ARTHRITIS
     Route: 048
     Dates: start: 20070912, end: 20090301
  9. RHEUMATREX [Concomitant]
     Route: 048
     Dates: start: 20090301, end: 20100312
  10. PREDONINE [Concomitant]
     Indication: RHEUMATOID ARTHRITIS
     Route: 048

REACTIONS (4)
  - PNEUMONIA [None]
  - RESPIRATORY FAILURE [None]
  - SEPSIS [None]
  - TUBERCULIN TEST POSITIVE [None]
